FAERS Safety Report 7592670-4 (Version None)
Quarter: 2011Q3

REPORT INFORMATION
  Report Type: 
  Country: None (occurrence: None)
  Receive Date: 20110706
  Receipt Date: 20110624
  Transmission Date: 20111222
  Serious: Yes (Hospitalization, Other)
  Sender: FDA-Public Use
  Company Number: CA-ELI_LILLY_AND_COMPANY-CA201102000966

PATIENT
  Age: 80 Year
  Sex: Female

DRUGS (7)
  1. CALCIUM CARBONATE [Concomitant]
  2. VITAMIN D [Concomitant]
  3. PLAVIX [Concomitant]
  4. TRAZODONE HCL [Concomitant]
  5. FORTEO [Suspect]
     Indication: OSTEOPOROSIS
     Dosage: 20 UG, DAILY (1/D)
     Route: 058
     Dates: start: 20100429, end: 20110128
  6. FORTEO [Suspect]
     Dosage: 20 UG, QD
     Route: 058
  7. SYNTHROID [Concomitant]

REACTIONS (6)
  - BLOOD CALCIUM INCREASED [None]
  - HYPOPHAGIA [None]
  - CONFUSIONAL STATE [None]
  - URINARY TRACT INFECTION [None]
  - HYPERCALCAEMIA [None]
  - DEHYDRATION [None]
